FAERS Safety Report 13284984 (Version 1)
Quarter: 2017Q1

REPORT INFORMATION
  Report Type: Spontaneous
  Country: US (occurrence: US)
  Receive Date: 20170301
  Receipt Date: 20170301
  Transmission Date: 20170428
  Serious: Yes (Other)
  Sender: FDA-Public Use
  Company Number: None

PATIENT
  Age: 6 Year
  Sex: Female
  Weight: 20.25 kg

DRUGS (1)
  1. TAMIFLU [Suspect]
     Active Substance: OSELTAMIVIR PHOSPHATE
     Indication: INFLUENZA
     Dosage: ?          QUANTITY:7.5 MILLILITERS;?
     Route: 048

REACTIONS (13)
  - Vomiting [None]
  - Feeling hot [None]
  - Fear [None]
  - Mood altered [None]
  - Hyperhidrosis [None]
  - Feeling abnormal [None]
  - Grunting [None]
  - Palpitations [None]
  - Nightmare [None]
  - Psychotic disorder [None]
  - Hallucination [None]
  - Panic reaction [None]
  - Anger [None]

NARRATIVE: CASE EVENT DATE: 20170228
